FAERS Safety Report 4971785-0 (Version None)
Quarter: 2006Q2

REPORT INFORMATION
  Report Type: 
  Country: None (occurrence: None)
  Receive Date: 20060413
  Receipt Date: 20060308
  Transmission Date: 20061013
  Serious: Yes (Hospitalization, Other)
  Sender: FDA-Public Use
  Company Number: 2006UW03954

PATIENT
  Age: 23183 Day
  Sex: Female
  Weight: 70 kg

DRUGS (13)
  1. SEROQUEL [Suspect]
     Indication: BIPOLAR DISORDER
     Route: 048
     Dates: end: 20060303
  2. SEROQUEL [Suspect]
     Indication: ANXIETY
     Route: 048
     Dates: end: 20060303
  3. SEROQUEL [Suspect]
     Dosage: 2-5 X PER DAY FOR ANXIETY
     Route: 048
     Dates: end: 20060303
  4. SEROQUEL [Suspect]
     Dosage: 2-5 X PER DAY FOR ANXIETY
     Route: 048
     Dates: end: 20060303
  5. CLIMARA [Concomitant]
     Dosage: 0.05 MG PER 24 HOURS
  6. ZIAC [Concomitant]
     Dosage: 5/6.25 MG
     Route: 048
  7. IMITREX [Concomitant]
  8. NORVASC [Concomitant]
     Route: 048
  9. LAMICTAL [Concomitant]
     Route: 048
  10. EPIPEN [Concomitant]
  11. ALPRAZOLAM [Concomitant]
  12. PROTON PUMP INHIBITOR [Concomitant]
  13. MIRALAX [Concomitant]
     Dosage: 1 CAPFUL IN WATER DAILY

REACTIONS (11)
  - ANAEMIA [None]
  - BLOOD POTASSIUM DECREASED [None]
  - BLOOD PRESSURE DECREASED [None]
  - CAMPYLOBACTER INFECTION [None]
  - DEHYDRATION [None]
  - DIARRHOEA [None]
  - GASTRITIS [None]
  - GASTROINTESTINAL HAEMORRHAGE [None]
  - LEUKOPENIA [None]
  - RALES [None]
  - SYNCOPE [None]
